FAERS Safety Report 13857050 (Version 1)
Quarter: 2017Q3

REPORT INFORMATION
  Report Type: Spontaneous
  Country: US (occurrence: US)
  Receive Date: 20170810
  Receipt Date: 20170810
  Transmission Date: 20171127
  Serious: No
  Sender: FDA-Public Use
  Company Number: US-ROCHE-1333662

PATIENT
  Sex: Female

DRUGS (3)
  1. BENZONATATE. [Concomitant]
     Active Substance: BENZONATATE
  2. ZITHROMAX [Concomitant]
     Active Substance: AZITHROMYCIN DIHYDRATE
     Indication: PHARYNGITIS STREPTOCOCCAL
  3. TAMIFLU [Suspect]
     Active Substance: OSELTAMIVIR PHOSPHATE
     Indication: INFLUENZA
     Route: 065
     Dates: start: 20140113

REACTIONS (3)
  - Pyrexia [Unknown]
  - Nausea [Unknown]
  - Vomiting [Unknown]
